FAERS Safety Report 8357066-6 (Version None)
Quarter: 2012Q2

REPORT INFORMATION
  Report Type: 
  Country: None (occurrence: None)
  Receive Date: 20120514
  Receipt Date: 20120430
  Transmission Date: 20120825
  Serious: Yes (Hospitalization)
  Sender: FDA-Public Use
  Company Number: US-ROCHE-1064686

PATIENT
  Age: 67 Year
  Sex: Female

DRUGS (3)
  1. MABTHERA [Suspect]
     Indication: B-CELL LYMPHOMA
     Route: 042
     Dates: start: 20110712, end: 20110712
  2. BORTEZOMIB [Suspect]
     Indication: B-CELL LYMPHOMA
     Route: 042
     Dates: start: 20110712, end: 20110715
  3. BENDAMUSTINE [Suspect]
     Indication: B-CELL LYMPHOMA
     Route: 042
     Dates: start: 20110712, end: 20110715

REACTIONS (4)
  - CLOSTRIDIAL INFECTION [None]
  - SMALL INTESTINAL OBSTRUCTION [None]
  - LIPASE INCREASED [None]
  - CYSTITIS [None]
